FAERS Safety Report 24146465 (Version 2)
Quarter: 2024Q3

REPORT INFORMATION
  Report Type: Spontaneous
  Country: US (occurrence: US)
  Receive Date: 20240729
  Receipt Date: 20240812
  Transmission Date: 20241016
  Serious: No
  Sender: MICRO LABS
  Company Number: US-862174955-ML2024-04115

PATIENT
  Sex: Male

DRUGS (4)
  1. CROMOLYN SODIUM [Suspect]
     Active Substance: CROMOLYN SODIUM
     Indication: Mycotic allergy
     Dosage: DOSE: TWO VIALS?STRENGTH: 100MG/5ML
     Route: 048
  2. SPIRIVA [Concomitant]
     Active Substance: TIOTROPIUM BROMIDE MONOHYDRATE
     Indication: Mycotic allergy
  3. FLOVENT [Concomitant]
     Active Substance: FLUTICASONE PROPIONATE
     Indication: Mycotic allergy
     Route: 055
  4. CROMOLYN SODIUM [Concomitant]
     Active Substance: CROMOLYN SODIUM
     Indication: Mycotic allergy
     Route: 055

REACTIONS (3)
  - Adverse event [Unknown]
  - Product storage error [Unknown]
  - Drug ineffective [Unknown]
